FAERS Safety Report 24125189 (Version 5)
Quarter: 2024Q3

REPORT INFORMATION
  Report Type: Spontaneous
  Country: US (occurrence: US)
  Receive Date: 20240723
  Receipt Date: 20240829
  Transmission Date: 20241017
  Serious: No
  Sender: ROCHE
  Company Number: US-ROCHE-10000030761

PATIENT
  Age: 69 Year
  Sex: Female
  Weight: 79.83 kg

DRUGS (20)
  1. XOLAIR [Suspect]
     Active Substance: OMALIZUMAB
     Indication: Urticaria
     Dosage: DRUG STILL BEING ADMINISTERED
     Route: 058
     Dates: start: 2024
  2. XOLAIR [Suspect]
     Active Substance: OMALIZUMAB
     Indication: Hypersensitivity
  3. TYLENOL [Concomitant]
     Active Substance: ACETAMINOPHEN
     Indication: Pain
     Dosage: TYLENOL 350 MG/CODEINE 60 MG; STARTED BEFORE XOLAIR, DRUG STILL BEING ADMINISTERED
     Route: 048
  4. SOMA [Concomitant]
     Active Substance: CARISOPRODOL
     Dosage: STARTED BEFORE XOLAIR, DRUG STILL BEING ADMINISTERED
     Route: 048
  5. GABAPENTIN [Concomitant]
     Active Substance: GABAPENTIN
     Indication: Pain
     Dosage: STARTED BEFORE XOLAIR, DRUG STILL BEING ADMINISTERED
     Route: 048
  6. GABAPENTIN [Concomitant]
     Active Substance: GABAPENTIN
     Indication: Neuropathy peripheral
  7. DULOXETINE [Concomitant]
     Active Substance: DULOXETINE
     Dosage: CAPSULE, STARTED BEFORE XOLAIR, DRUG STILL BEING ADMINISTERED.
     Route: 048
  8. CELECOXIB [Concomitant]
     Active Substance: CELECOXIB
     Dosage: STARTED BEFORE XOLAIR, DRUG STILL BEING ADMINISTERED.
     Route: 048
  9. ATORVASTATIN [Concomitant]
     Active Substance: ATORVASTATIN
     Indication: Blood cholesterol increased
     Dosage: TAKES AT BEDTIME; STARTED BEFORE XOLAIR, DRUG STILL BEING ADMINISTERED.
     Route: 048
  10. LOSARTAN [Concomitant]
     Active Substance: LOSARTAN\LOSARTAN POTASSIUM
     Indication: Hypertension
     Dosage: TAKES IN THE MORNING; STARTED BEFORE XOLAIR, DRUG STILL BEING ADMINISTERED
     Route: 048
  11. OMEPRAZOLE [Concomitant]
     Active Substance: OMEPRAZOLE
     Dosage: CAPSULE, TAKES AT BEDTIME; STARTED BEFORE XOLAIR, DRUG STILL BEING ADMINISTERED
     Route: 048
  12. HYDROCHLOROTHIAZIDE [Concomitant]
     Active Substance: HYDROCHLOROTHIAZIDE
     Indication: Fluid retention
     Dosage: TAKES IN THE MORNING; STARTED BEFORE XOLAIR, DRUG STILL BEING ADMINISTERED
     Route: 048
  13. BUSPAR [Concomitant]
     Active Substance: BUSPIRONE HYDROCHLORIDE
     Indication: Anxiety
     Dosage: STARTED BEFORE XOLAIR, DRUG STILL BEING ADMINISTERED
     Route: 048
  14. BUSPAR [Concomitant]
     Active Substance: BUSPIRONE HYDROCHLORIDE
     Indication: Depression
  15. CLONIDINE [Concomitant]
     Active Substance: CLONIDINE
     Indication: Hypertension
     Dosage: STARTED BEFORE XOLAIR, DRUG STILL BEING ADMINISTERED
     Route: 048
  16. CETIRIZINE [Concomitant]
     Active Substance: CETIRIZINE HYDROCHLORIDE
     Indication: Hypersensitivity
     Dosage: STARTED BEFORE XOLAIR, DRUG STILL BEING ADMINISTERED
     Route: 048
  17. MELOXICAM [Concomitant]
     Active Substance: MELOXICAM
     Indication: Inflammation
     Dosage: TAKES AT BEDTIME; STARTED BEFORE XOLAIR, DRUG STILL BEING ADMINISTERED.
     Route: 048
  18. HYDROXYZINE [Concomitant]
     Active Substance: HYDROXYZINE HYDROCHLORIDE
     Indication: Hypersensitivity
     Dosage: STARTED BEFORE XOLAIR, DRUG STILL BEING ADMINISTERED
     Route: 048
  19. BIOTIN [Concomitant]
     Active Substance: BIOTIN
     Dosage: GUMMY, TAKES 3-4 GUMMIES DAILY, DRUG STILL BEING ADMINISTERED
     Route: 048
  20. VITAMIN B COMPLEX [Concomitant]
     Active Substance: CYANOCOBALAMIN\DEXPANTHENOL\NIACINAMIDE\PYRIDOXINE HYDROCHLORIDE\RIBOFLAVIN 5^-PHOSPHATE SODIUM\THIA
     Dosage: CAPLET, STARTED BEFORE XOLAIR,
     Route: 048

REACTIONS (10)
  - Syringe issue [Unknown]
  - Infection [Not Recovered/Not Resolved]
  - Intercepted product administration error [Unknown]
  - Product quality issue [Unknown]
  - Accidental exposure to product [Unknown]
  - Needle issue [Unknown]
  - Blister [Unknown]
  - Off label use [Unknown]
  - Inappropriate schedule of product administration [Unknown]
  - Device defective [Unknown]

NARRATIVE: CASE EVENT DATE: 20240101
